FAERS Safety Report 7425621-3 (Version None)
Quarter: 2011Q2

REPORT INFORMATION
  Report Type: 
  Country: None (occurrence: None)
  Receive Date: 20110420
  Receipt Date: 20110411
  Transmission Date: 20111010
  Serious: Yes (Hospitalization, Other)
  Sender: FDA-Public Use
  Company Number: US-B.I. PHARMACEUTICALS,INC./RIDGEFIELD-2011-BP-05003BP

PATIENT
  Sex: Female

DRUGS (8)
  1. ALLOPURINOL [Concomitant]
     Dosage: 100 MG
  2. FUROSEMIDE [Concomitant]
     Dosage: 80 MG
  3. AMIODARONE [Concomitant]
     Dosage: 200 MG
  4. PRADAXA [Suspect]
     Indication: ATRIAL FIBRILLATION
     Dosage: 300 MG
     Route: 048
     Dates: start: 20110220, end: 20110223
  5. DILTIAZEM [Concomitant]
     Dosage: 120 MG
  6. METOPROLOL [Concomitant]
     Dosage: 100 MG
  7. PRADAXA [Suspect]
     Indication: MITRAL VALVE PROLAPSE
  8. CLONAZEPAM [Concomitant]
     Dosage: 1 MG

REACTIONS (5)
  - CARDIAC FAILURE CONGESTIVE [None]
  - EYE HAEMORRHAGE [None]
  - RECTAL HAEMORRHAGE [None]
  - PULMONARY OEDEMA [None]
  - RENAL FAILURE [None]
